FAERS Safety Report 9272312 (Version 1)
Quarter: 2013Q2

REPORT INFORMATION
  Report Type: Spontaneous
  Country: US (occurrence: US)
  Receive Date: 20130506
  Receipt Date: 20130506
  Transmission Date: 20140414
  Serious: No
  Sender: FDA-Public Use
  Company Number: US-ASTRAZENECA-2013SE16905

PATIENT
  Age: 72 Year
  Sex: Female

DRUGS (2)
  1. PRILOSEC OTC [Suspect]
     Indication: ABDOMINAL DISCOMFORT
     Route: 048
     Dates: start: 20130206, end: 20130310
  2. PROBIOTIC FEMINA [Concomitant]

REACTIONS (3)
  - Dizziness [Recovered/Resolved]
  - Off label use [Unknown]
  - Drug ineffective [Unknown]
